FAERS Safety Report 21413195 (Version 1)
Quarter: 2022Q4

REPORT INFORMATION
  Report Type: Spontaneous
  Country: US (occurrence: None)
  Receive Date: 20221004
  Receipt Date: 20221004
  Transmission Date: 20230113
  Serious: No
  Sender: FDA-Public Use
  Company Number: None

PATIENT
  Age: 75 Year
  Sex: Female
  Weight: 77.11 kg

DRUGS (1)
  1. HUMIRA [Suspect]
     Active Substance: ADALIMUMAB
     Indication: Rheumatoid arthritis
     Dosage: FREQUENCY : EVERY OTHER WEEK;?INJECT 40MG SUBCUTANEOUSLY EVERY 2 WEEKS IN THE?ABDOMEN OR THIGH (ROTA
     Route: 058
     Dates: start: 202005

REACTIONS (2)
  - Therapy interrupted [None]
  - Gingivitis [None]
